FAERS Safety Report 7928642-7 (Version None)
Quarter: 2011Q4

REPORT INFORMATION
  Report Type: 
  Country: None (occurrence: None)
  Receive Date: 20111118
  Receipt Date: 20111114
  Transmission Date: 20120403
  Serious: Yes (Other)
  Sender: FDA-Public Use
  Company Number: US-ABBOTT-11P-163-0873799-00

PATIENT
  Sex: Female

DRUGS (2)
  1. HUMIRA [Suspect]
     Indication: CROHN'S DISEASE
     Dates: start: 20080701
  2. AMBIEN [Concomitant]
     Indication: INSOMNIA

REACTIONS (5)
  - BACK PAIN [None]
  - CONSTIPATION [None]
  - ABDOMINAL PAIN [None]
  - PYREXIA [None]
  - HERNIA [None]
